FAERS Safety Report 5566760-1 (Version None)
Quarter: 2007Q4

REPORT INFORMATION
  Report Type: 
  Country: None (occurrence: None)
  Receive Date: 20071218
  Receipt Date: 20071218
  Transmission Date: 20080405
  Serious: No
  Sender: FDA-Public Use
  Company Number: None

PATIENT
  Age: 37 Year
  Sex: Male
  Weight: 132.4503 kg

DRUGS (6)
  1. CLOZAPINE [Suspect]
     Dosage: 250MG PO
     Route: 048
  2. DEPAKOTE [Concomitant]
  3. COGENTIN [Concomitant]
  4. GEODON [Concomitant]
  5. WELLBUTRIN [Concomitant]
  6. ABILIFY [Concomitant]

REACTIONS (6)
  - HAEMOGLOBIN INCREASED [None]
  - PLATELET COUNT DECREASED [None]
  - PYREXIA [None]
  - SEDATION [None]
  - STUPOR [None]
  - TACHYCARDIA [None]
